FAERS Safety Report 21975625 (Version 1)
Quarter: 2023Q1

REPORT INFORMATION
  Report Type: Other
  Country: CA (occurrence: None)
  Receive Date: 20230210
  Receipt Date: 20230210
  Transmission Date: 20230417
  Serious: No
  Sender: FDA-Public Use
  Company Number: CA-ROCHE-2441047

PATIENT
  Age: 46 Year
  Sex: Female
  Weight: 57 kg

DRUGS (9)
  1. OCREVUS [Suspect]
     Active Substance: OCRELIZUMAB
     Indication: Relapsing-remitting multiple sclerosis
     Dosage: 300 MG AT DAY 0 AND 14, THEN 600 MG EVERY 6 MONTH, CONCENTRATE FOR INTRAVENOUS INFUSION
     Route: 042
     Dates: start: 20191007
  2. OCREVUS [Suspect]
     Active Substance: OCRELIZUMAB
     Route: 042
     Dates: start: 201912
  3. BENADRYL [Suspect]
     Active Substance: DIPHENHYDRAMINE HYDROCHLORIDE
     Indication: Premedication
     Route: 042
  4. CETIRIZINE HYDROCHLORIDE [Suspect]
     Active Substance: CETIRIZINE HYDROCHLORIDE
     Indication: Premedication
     Route: 048
  5. PRAMIPEXOLE [Concomitant]
     Active Substance: PRAMIPEXOLE
     Dosage: EVERY EVENING
  6. ELAVIL [Concomitant]
     Active Substance: AMITRIPTYLINE HYDROCHLORIDE
     Dosage: AT BEDTIME
  7. LYRICA [Concomitant]
     Active Substance: PREGABALIN
     Dosage: 2 TABLETS OF 75 MG AT BEDTIME
  8. BACLOFEN [Concomitant]
     Active Substance: BACLOFEN
     Dosage: 2 TABLETS OF 10 MG AT BED TIME
  9. TYLENOL [Concomitant]
     Active Substance: ACETAMINOPHEN

REACTIONS (8)
  - Infusion related reaction [Recovered/Resolved]
  - Pain [Unknown]
  - Infusion related reaction [Unknown]
  - Infusion related reaction [Unknown]
  - Oxygen saturation decreased [Recovered/Resolved]
  - Nasopharyngitis [Recovering/Resolving]
  - Drug ineffective [Unknown]
  - Influenza [Not Recovered/Not Resolved]

NARRATIVE: CASE EVENT DATE: 20191007
